FAERS Safety Report 9350474 (Version 4)
Quarter: 2013Q3

REPORT INFORMATION
  Report Type: Spontaneous
  Country: US (occurrence: US)
  Receive Date: 20130617
  Receipt Date: 20130918
  Transmission Date: 20140515
  Serious: Yes (Hospitalization, Other)
  Sender: FDA-Public Use
  Company Number: US-PFIZER INC-2013179298

PATIENT
  Age: 69 Year
  Sex: Male
  Weight: 90.28 kg

DRUGS (8)
  1. SUTENT [Suspect]
     Indication: THYROID DISORDER
     Dosage: 50 MG, 1X/DAY
     Route: 048
     Dates: start: 20130424, end: 20130515
  2. SUTENT [Suspect]
     Indication: THYROID CANCER
  3. ATIVAN [Concomitant]
     Dosage: UNK
  4. CALCIUM WITH VITAMIN D [Concomitant]
     Dosage: UNK
  5. LOPRESSOR [Concomitant]
     Dosage: UNK
  6. OXYCONTIN [Concomitant]
     Dosage: UNK
  7. PLAVIX [Concomitant]
     Dosage: UNK
  8. SYNTHROID [Concomitant]
     Dosage: UNK

REACTIONS (13)
  - Asthenia [Unknown]
  - Dizziness [Unknown]
  - Hypotension [Unknown]
  - Haematochezia [Recovering/Resolving]
  - Bone marrow failure [Unknown]
  - Adrenal insufficiency [Unknown]
  - Pancytopenia [Recovering/Resolving]
  - Off label use [Unknown]
  - Hallucination [Unknown]
  - Neck pain [Unknown]
  - Local swelling [Unknown]
  - Blood count abnormal [Recovering/Resolving]
  - Platelet count decreased [Unknown]
